FAERS Safety Report 5707546-4 (Version None)
Quarter: 2008Q2

REPORT INFORMATION
  Report Type: 
  Country: None (occurrence: None)
  Receive Date: 20080411
  Receipt Date: 20060927
  Transmission Date: 20081010
  Serious: Yes (Other)
  Sender: FDA-Public Use
  Company Number: 8019105

PATIENT
  Age: 6 Year
  Sex: Male

DRUGS (1)
  1. METADATE ER [Suspect]
     Indication: ATTENTION DEFICIT/HYPERACTIVITY DISORDER
     Dosage: 30 MG PO
     Route: 048
     Dates: start: 20060531

REACTIONS (2)
  - MEDICATION ERROR [None]
  - VISION BLURRED [None]
